FAERS Safety Report 5936391-X (Version None)
Quarter: 2008Q4

REPORT INFORMATION
  Report Type: 
  Country: None (occurrence: None)
  Receive Date: 20081030
  Receipt Date: 20081020
  Transmission Date: 20090506
  Serious: Yes (Life-Threatening, Hospitalization)
  Sender: FDA-Public Use
  Company Number: SI-ELI_LILLY_AND_COMPANY-SI200810004907

PATIENT
  Age: 23 Year
  Sex: Male

DRUGS (1)
  1. CYMBALTA [Suspect]
     Indication: SOCIAL PHOBIA
     Dosage: 120 MG, DAILY (1/D), MORNING
     Route: 048
     Dates: start: 20080301

REACTIONS (4)
  - ALCOHOL ABUSE [None]
  - DRUG INEFFECTIVE [None]
  - SOCIAL PHOBIA [None]
  - SUICIDAL IDEATION [None]
